FAERS Safety Report 21357143 (Version 1)
Quarter: 2022Q3

REPORT INFORMATION
  Report Type: Spontaneous
  Country: US (occurrence: US)
  Receive Date: 20220921
  Receipt Date: 20220921
  Transmission Date: 20221026
  Serious: No
  Sender: FDA-Public Use
  Company Number: US-STRIDES ARCOLAB LIMITED-2022SP008751

PATIENT
  Age: 16 Year
  Sex: Female

DRUGS (14)
  1. PREDNISOLONE [Suspect]
     Active Substance: PREDNISOLONE
     Indication: Multisystem inflammatory syndrome in children
     Dosage: 15 MILLIGRAM, EVERY 12 HRS (TAPER WITH 15 MG EVERY 12 H FOR 5 DAYS, THEN 15 MG DAILY FOR 5 DAYS)
     Route: 048
  2. PREDNISOLONE [Suspect]
     Active Substance: PREDNISOLONE
     Dosage: TAPER WITH 15 MG EVERY 12 H FOR 5 DAYS, THEN 15 MG DAILY FOR 5 DAYS
     Route: 048
  3. DEXAMETHASONE [Suspect]
     Active Substance: DEXAMETHASONE
     Indication: Maternal therapy to enhance foetal lung maturity
     Dosage: 6 MILLIGRAM (FOR TWO DOSES)
     Route: 065
  4. DEXAMETHASONE [Suspect]
     Active Substance: DEXAMETHASONE
     Indication: Multisystem inflammatory syndrome in children
  5. NOREPINEPHRINE [Suspect]
     Active Substance: NOREPINEPHRINE
     Indication: Hypotension
     Dosage: UNK (INITIAL DOSE OF 3 UG/MIN)
     Route: 065
  6. NOREPINEPHRINE [Suspect]
     Active Substance: NOREPINEPHRINE
     Dosage: UNK (CONTINUED ON TREATMENT, REACHING A MAXIMUM DOSE OF NOREPINEPHRINE 7 UG/MIN AT 24 H)
     Route: 065
  7. CEFTRIAXONE [Suspect]
     Active Substance: CEFTRIAXONE
     Indication: Antibiotic therapy
     Dosage: 2 GRAM, PER DAY (2 G Q24H)
     Route: 042
  8. VANCOMYCIN [Suspect]
     Active Substance: VANCOMYCIN
     Indication: Antibiotic therapy
     Dosage: 1500 MILLIGRAM (LOADING DOSE)
     Route: 042
  9. ENOXAPARIN [Suspect]
     Active Substance: ENOXAPARIN
     Indication: Anticoagulant therapy
     Dosage: UNK, 0.5 M/KG EVERY 12 HRS
     Route: 065
  10. METHYLPREDNISOLONE [Suspect]
     Active Substance: METHYLPREDNISOLONE
     Indication: Multisystem inflammatory syndrome in children
     Dosage: 30 MILLIGRAM, BID
     Route: 042
  11. METHYLPREDNISOLONE [Suspect]
     Active Substance: METHYLPREDNISOLONE
     Dosage: 30 MILLIGRAM, BID (FOR 5 DAYS WITH OVERLAPPING 2 DOSES OF BETAMETHASONE)
     Route: 042
  12. PRIVIGEN [Suspect]
     Active Substance: HUMAN IMMUNOGLOBULIN G
     Indication: Multisystem inflammatory syndrome in children
     Dosage: UNK (A ONE-TIME DOSE OF 2 G/KG)
     Route: 042
  13. ACETAMINOPHEN [Suspect]
     Active Substance: ACETAMINOPHEN
     Indication: Pyrexia
     Dosage: UNK
     Route: 065
  14. BETAMETHASONE [Suspect]
     Active Substance: BETAMETHASONE
     Indication: Multisystem inflammatory syndrome in children
     Dosage: 12 MILLIGRAM, PER DAY (OVERLAPPING 2 DOSES OF BETAMETHASONE WITH METHYLPREDNISOLONE)
     Route: 065

REACTIONS (2)
  - Maternal exposure during pregnancy [Unknown]
  - Off label use [Unknown]
